FAERS Safety Report 8198102-X (Version None)
Quarter: 2012Q1

REPORT INFORMATION
  Report Type: 
  Country: None (occurrence: None)
  Receive Date: 20120309
  Receipt Date: 20120116
  Transmission Date: 20120608
  Serious: No
  Sender: FDA-Public Use
  Company Number: US-AMGEN-USASP2012003161

PATIENT
  Age: 58 Year
  Sex: Female

DRUGS (11)
  1. ATENOLOL [Concomitant]
  2. CALCIUM [Concomitant]
  3. METFORMIN HCL [Concomitant]
     Dosage: UNK
  4. STATIN [Concomitant]
     Dosage: UNK
  5. ANTIDEPRESSANTS [Concomitant]
     Dosage: UNK
  6. DIGOXIN [Concomitant]
     Dosage: UNK
  7. VITAMIN A [Concomitant]
     Dosage: UNK
  8. ASPIRIN [Concomitant]
     Dosage: 1 MG, UNK
  9. LASIX [Concomitant]
     Dosage: UNK
  10. LEVOTHYROXINE SODIUM [Concomitant]
     Dosage: UNK
  11. PROLIA [Suspect]
     Indication: OSTEOPOROSIS POSTMENOPAUSAL
     Dosage: UNK UNK, Q6MO
     Dates: start: 20120106

REACTIONS (2)
  - BACK PAIN [None]
  - MOBILITY DECREASED [None]
